FAERS Safety Report 21225432 (Version 1)
Quarter: 2022Q3

REPORT INFORMATION
  Report Type: Spontaneous
  Country: US (occurrence: US)
  Receive Date: 20220818
  Receipt Date: 20220818
  Transmission Date: 20221027
  Serious: Yes (Other)
  Sender: FDA-Public Use
  Company Number: US-BAUSCH-BL-2022-019839

PATIENT
  Age: 72 Year
  Sex: Female

DRUGS (1)
  1. SOOTHE XP [Suspect]
     Active Substance: LIGHT MINERAL OIL\MINERAL OIL
     Indication: Dry eye
     Route: 047
     Dates: start: 20220808, end: 20220808

REACTIONS (4)
  - Blindness transient [Unknown]
  - Physical product label issue [Unknown]
  - Liquid product physical issue [Unknown]
  - Product quality issue [Unknown]
